FAERS Safety Report 6697505-X (Version None)
Quarter: 2010Q2

REPORT INFORMATION
  Report Type: 
  Country: None (occurrence: None)
  Receive Date: 20100426
  Receipt Date: 20100415
  Transmission Date: 20101027
  Serious: Yes (Other)
  Sender: FDA-Public Use
  Company Number: US-BAXTER-2010BH008988

PATIENT
  Age: 54 Year
  Sex: Male

DRUGS (3)
  1. DIANEAL [Suspect]
     Indication: PERITONEAL DIALYSIS
     Route: 033
     Dates: start: 20100301
  2. DIANEAL [Suspect]
     Indication: PERITONEAL DIALYSIS
     Route: 033
     Dates: start: 20100226, end: 20100301
  3. DIANEAL [Suspect]
     Route: 033
     Dates: start: 20091101, end: 20091101

REACTIONS (3)
  - ABDOMINAL HERNIA [None]
  - FLUID IMBALANCE [None]
  - INFUSION SITE EXTRAVASATION [None]
